FAERS Safety Report 19020928 (Version 1)
Quarter: 2021Q1

REPORT INFORMATION
  Report Type: Report from Study
  Country: BR (occurrence: BR)
  Receive Date: 20210317
  Receipt Date: 20210317
  Transmission Date: 20210420
  Serious: Yes (Death, Hospitalization, Other)
  Sender: FDA-Public Use
  Company Number: BR-TAKEDA-ALL1-2013-04998

PATIENT
  Age: 37 Year
  Sex: Male

DRUGS (7)
  1. DIGOXINE [Concomitant]
     Active Substance: DIGOXIN
     Indication: BLOOD PRESSURE MEASUREMENT
     Dosage: 0.25 MG, UNKNOWN
     Route: 065
  2. CAPTOPRIL. [Concomitant]
     Active Substance: CAPTOPRIL
     Indication: BLOOD PRESSURE MEASUREMENT
     Dosage: 24 MG, 2X/DAY:BID
     Route: 065
  3. IDURSULFASE [Suspect]
     Active Substance: IDURSULFASE
     Dosage: (3 VIALS ALTERNATING WITH 4 VIALS WEEKLY8 MG, OTHER
     Route: 041
     Dates: start: 2005, end: 20130529
  4. IDURSULFASE [Suspect]
     Active Substance: IDURSULFASE
     Dosage: UNK UNK, 1X/2WKS (ALTERNATE WEEKS)
     Route: 041
     Dates: start: 20040301, end: 2005
  5. IDURSULFASE [Suspect]
     Active Substance: IDURSULFASE
     Indication: MUCOPOLYSACCHARIDOSIS II
     Dosage: 6 MG, OTHER (3 VIALS ALTERNATING WITH 4 VIALS WEEKLY
     Route: 041
     Dates: start: 2005, end: 20130529
  6. FUROSEMIDE. [Concomitant]
     Active Substance: FUROSEMIDE
     Indication: BLOOD PRESSURE MEASUREMENT
     Dosage: 40 MG, 2X/DAY:BID
     Route: 065
  7. IDURSULFASE [Suspect]
     Active Substance: IDURSULFASE
     Dosage: 0.5 MG/KG, 1X/WEEK
     Route: 041
     Dates: start: 20050630

REACTIONS (4)
  - Respiratory distress [Unknown]
  - Inguinal hernia [Unknown]
  - Cardiac arrest [Recovered/Resolved]
  - Procedural complication [Fatal]

NARRATIVE: CASE EVENT DATE: 20130610
